FAERS Safety Report 7164544-4 (Version None)
Quarter: 2010Q4

REPORT INFORMATION
  Report Type: 
  Country: None (occurrence: None)
  Receive Date: 20101215
  Receipt Date: 20101128
  Transmission Date: 20110411
  Serious: Yes (Hospitalization)
  Sender: FDA-Public Use
  Company Number: US-GILEAD-2010-0034285

PATIENT
  Sex: Female

DRUGS (2)
  1. RANEXA [Suspect]
     Indication: ANGINA PECTORIS
     Route: 048
     Dates: start: 20101123, end: 20101125
  2. RANEXA [Suspect]
     Route: 048
     Dates: start: 20101122, end: 20101122

REACTIONS (3)
  - CHEST PAIN [None]
  - MUSCULAR WEAKNESS [None]
  - VISION BLURRED [None]
